FAERS Safety Report 4456970-9 (Version None)
Quarter: 2004Q3

REPORT INFORMATION
  Report Type: 
  Country: None (occurrence: None)
  Receive Date: 20040921
  Receipt Date: 20040907
  Transmission Date: 20050211
  Serious: Yes (Hospitalization)
  Sender: FDA-Public Use
  Company Number: 2004SE05002

PATIENT
  Age: 60 Year
  Sex: Female

DRUGS (3)
  1. SEROQUEL [Suspect]
     Indication: BIPOLAR DISORDER
     Dosage: 400 MG DAILY PO
     Route: 048
     Dates: start: 20040707
  2. SEROQUEL [Suspect]
     Indication: BIPOLAR DISORDER
     Dosage: 500 MG DAILY PO
     Route: 048
  3. HYDROCHLOROTHIAZIDE [Concomitant]

REACTIONS (4)
  - HYPONATRAEMIA [None]
  - HYPOTENSION [None]
  - SOMNOLENCE [None]
  - TACHYCARDIA [None]
